FAERS Safety Report 23036714 (Version 2)
Quarter: 2023Q4

REPORT INFORMATION
  Report Type: Spontaneous
  Country: IQ (occurrence: None)
  Receive Date: 20231006
  Receipt Date: 20231103
  Transmission Date: 20240109
  Serious: Yes (Death)
  Sender: FDA-Public Use
  Company Number: IQ-ROCHE-3433701

PATIENT
  Age: 0 Year
  Sex: Male
  Weight: 4.75 kg

DRUGS (1)
  1. RISDIPLAM [Suspect]
     Active Substance: RISDIPLAM
     Indication: Spinal muscular atrophy
     Route: 048
     Dates: start: 20230723, end: 20231003

REACTIONS (1)
  - Death [Fatal]

NARRATIVE: CASE EVENT DATE: 20231003
